FAERS Safety Report 10435229 (Version 2)
Quarter: 2014Q3

REPORT INFORMATION
  Report Type: Spontaneous
  Country: US (occurrence: US)
  Receive Date: 20140907
  Receipt Date: 20140924
  Transmission Date: 20150326
  Serious: Yes (Hospitalization)
  Sender: FDA-Public Use
  Company Number: US-AMGEN-USASP2014067538

PATIENT
  Age: 73 Year
  Sex: Female
  Weight: 90.25 kg

DRUGS (4)
  1. ENBREL [Suspect]
     Active Substance: ETANERCEPT
     Indication: RHEUMATOID ARTHRITIS
     Dosage: UNK
     Route: 065
  2. HUMIRA [Suspect]
     Active Substance: ADALIMUMAB
     Indication: PRODUCT USED FOR UNKNOWN INDICATION
     Dosage: UNK
     Route: 065
  3. XELJANZ [Suspect]
     Active Substance: TOFACITINIB CITRATE
     Indication: RHEUMATOID ARTHRITIS
     Dosage: 5 UNK, BID
     Route: 048
     Dates: start: 20140515, end: 20140817
  4. ORENCIA [Suspect]
     Active Substance: ABATACEPT
     Indication: PRODUCT USED FOR UNKNOWN INDICATION
     Dosage: UNK
     Route: 065

REACTIONS (8)
  - Confusional state [Unknown]
  - Pyrexia [Unknown]
  - Diarrhoea [Unknown]
  - Drug ineffective [Unknown]
  - Hyponatraemia [Unknown]
  - Oropharyngeal pain [Unknown]
  - Asthenia [Unknown]
  - Bronchitis [Unknown]

NARRATIVE: CASE EVENT DATE: 20140817
